FAERS Safety Report 9630879 (Version 1)
Quarter: 2013Q4

REPORT INFORMATION
  Report Type: Report from Study
  Country: US (occurrence: US)
  Receive Date: 20131018
  Receipt Date: 20131018
  Transmission Date: 20140711
  Serious: Yes (Hospitalization)
  Sender: FDA-Public Use
  Company Number: US-JNJFOC-20131007816

PATIENT
  Sex: Male

DRUGS (1)
  1. SIMPONI [Suspect]
     Indication: PSORIATIC ARTHROPATHY
     Route: 058
     Dates: end: 201212

REACTIONS (3)
  - Gastric infection [Recovered/Resolved]
  - Diverticulitis [Recovered/Resolved]
  - Psoriatic arthropathy [Not Recovered/Not Resolved]
